FAERS Safety Report 6401501-7 (Version None)
Quarter: 2009Q4

REPORT INFORMATION
  Report Type: 
  Country: None (occurrence: None)
  Receive Date: 20091015
  Receipt Date: 20091013
  Transmission Date: 20100525
  Serious: Yes (Other)
  Sender: FDA-Public Use
  Company Number: FR-BRISTOL-MYERS SQUIBB COMPANY-14815625

PATIENT
  Age: 52 Year
  Sex: Female

DRUGS (4)
  1. ABILIFY [Suspect]
     Indication: DEPRESSION
     Dosage: 1DF=1/2 TAB
     Dates: start: 20070101, end: 20090101
  2. ZOPICLONE [Suspect]
     Indication: DEPRESSION
  3. VICTAN [Suspect]
     Indication: DEPRESSION
  4. EFFEXOR [Suspect]
     Indication: DEPRESSION

REACTIONS (1)
  - COMPULSIVE SHOPPING [None]
